FAERS Safety Report 6983248-1 (Version None)
Quarter: 2010Q3

REPORT INFORMATION
  Report Type: 
  Country: None (occurrence: None)
  Receive Date: 20100914
  Receipt Date: 20100713
  Transmission Date: 20110219
  Serious: No
  Sender: FDA-Public Use
  Company Number: US-PFIZER INC-2010087754

PATIENT
  Sex: Female
  Weight: 85 kg

DRUGS (9)
  1. LYRICA [Suspect]
     Indication: FIBROMYALGIA
     Dosage: 75 MG, 2X/DAY
  2. CYMBALTA [Concomitant]
     Dosage: 30 MG, UNK
  3. SIMVASTATIN [Concomitant]
     Dosage: 40 MG, UNK
  4. CARVEDILOL [Concomitant]
     Dosage: 25 MG, UNK
  5. VALSARTAN [Concomitant]
     Dosage: 320 MG, UNK
  6. AMLODIPINE [Concomitant]
     Dosage: 10 MG, UNK
  7. ZOLPIDEM [Concomitant]
     Dosage: 10 MG, UNK
  8. TRIAMTERENE [Concomitant]
     Dosage: 37.5 MG, UNK
  9. TIZANIDINE [Concomitant]
     Dosage: FREQUENCY: AS NEEDED,

REACTIONS (3)
  - FEELING HOT [None]
  - GASTRITIS [None]
  - OEDEMA PERIPHERAL [None]
